FAERS Safety Report 15641308 (Version 3)
Quarter: 2018Q4

REPORT INFORMATION
  Report Type: Spontaneous
  Country: NL (occurrence: NL)
  Receive Date: 20181120
  Receipt Date: 20181120
  Transmission Date: 20190205
  Serious: Yes (Hospitalization)
  Sender: FDA-Public Use
  Company Number: PHHY2017NL203715

PATIENT
  Age: 47 Year
  Sex: Female
  Weight: 81 kg

DRUGS (17)
  1. DICLOFENAC [Suspect]
     Active Substance: DICLOFENAC
     Indication: PRODUCT USED FOR UNKNOWN INDICATION
     Dosage: UNK
     Route: 065
  2. MORPHINE [Suspect]
     Active Substance: MORPHINE
     Indication: STOMA SITE PAIN
     Dosage: UNK
     Route: 065
  3. DUODOPA [Suspect]
     Active Substance: CARBIDOPA\LEVODOPA
     Dosage: UNK (MD 9.5, CD 5.1, ED 3, CND 2.6, END 3)
     Route: 050
  4. STALEVO [Concomitant]
     Active Substance: CARBIDOPA\ENTACAPONE\LEVODOPA
     Indication: PRODUCT USED FOR UNKNOWN INDICATION
     Dosage: 5 DF, QD (5 UG/LITRE200/50/200MG EVERY 3 HOURS)
     Route: 065
  5. ESCITALOPRAM [Concomitant]
     Active Substance: ESCITALOPRAM OXALATE
     Indication: PRODUCT USED FOR UNKNOWN INDICATION
     Dosage: UNK
     Route: 065
  6. SIMVASTATIN. [Concomitant]
     Active Substance: SIMVASTATIN
     Indication: PRODUCT USED FOR UNKNOWN INDICATION
     Dosage: UNK
     Route: 065
  7. DUODOPA [Suspect]
     Active Substance: CARBIDOPA\LEVODOPA
     Dosage: UNK (MD 9.5, CD 4.9, ED 3)
     Route: 050
  8. LEVODOPA/CARBIDOPA [Concomitant]
     Active Substance: CARBIDOPA\LEVODOPA
     Indication: PRODUCT USED FOR UNKNOWN INDICATION
     Dosage: 200 MG, UNK (200/50MG)
     Route: 065
  9. RANITIDINE. [Concomitant]
     Active Substance: RANITIDINE
     Indication: PRODUCT USED FOR UNKNOWN INDICATION
     Route: 065
  10. DUODOPA [Suspect]
     Active Substance: CARBIDOPA\LEVODOPA
     Indication: PARKINSON^S DISEASE
     Dosage: UNK (MD 12, CDD: 4.3, EDD: 3)
     Route: 050
  11. DUODOPA [Suspect]
     Active Substance: CARBIDOPA\LEVODOPA
     Dosage: UNK (MD 9.5, CD 4.7, ED 3, CND2.6, END 3)
     Route: 050
  12. PANTOPRAZOLE [Concomitant]
     Active Substance: PANTOPRAZOLE
     Indication: PRODUCT USED FOR UNKNOWN INDICATION
     Route: 065
  13. DUODOPA [Suspect]
     Active Substance: CARBIDOPA\LEVODOPA
     Dosage: UNK (MD 9, CD 4.3, ED 2)
     Route: 050
  14. OXYCODONE [Concomitant]
     Active Substance: OXYCODONE
     Indication: PRODUCT USED FOR UNKNOWN INDICATION
     Dosage: UNK
     Route: 065
  15. PROPRANOLOL [Concomitant]
     Active Substance: PROPRANOLOL HYDROCHLORIDE
     Indication: PRODUCT USED FOR UNKNOWN INDICATION
     Dosage: UNK
     Route: 065
  16. DUODOPA [Suspect]
     Active Substance: CARBIDOPA\LEVODOPA
     Dosage: UNK (DAILY PUMP: CD : 5.1 ED : 3 NIGHT PUMP: MD: 10 CD: 2.8 ED: 3)
     Route: 050
  17. DUODOPA [Suspect]
     Active Substance: CARBIDOPA\LEVODOPA
     Dosage: UNK (MD:9.0, CD:4.5, ED:3.0, CND:2.3, END:3.0)
     Route: 050

REACTIONS (89)
  - Nightmare [Recovered/Resolved]
  - Vestibular disorder [Not Recovered/Not Resolved]
  - Muscle disorder [Not Recovered/Not Resolved]
  - Myalgia [Not Recovered/Not Resolved]
  - Diplopia [Not Recovered/Not Resolved]
  - Hallucination [Recovered/Resolved]
  - Depressed mood [Recovered/Resolved]
  - Insomnia [Recovered/Resolved]
  - Drug effect incomplete [Recovering/Resolving]
  - Balance disorder [Not Recovered/Not Resolved]
  - Body temperature increased [Recovered/Resolved]
  - Stoma site haemorrhage [Recovered/Resolved]
  - Gait disturbance [Not Recovered/Not Resolved]
  - Pain in jaw [Recovering/Resolving]
  - Chest pain [Recovered/Resolved]
  - Fibroma [Not Recovered/Not Resolved]
  - Pancreatic disorder [Unknown]
  - Paraesthesia [Not Recovered/Not Resolved]
  - Hallucination, visual [Unknown]
  - Confusional state [Not Recovered/Not Resolved]
  - General physical health deterioration [Recovered/Resolved]
  - Loss of personal independence in daily activities [Not Recovered/Not Resolved]
  - Poor quality sleep [Recovered/Resolved]
  - Headache [Not Recovered/Not Resolved]
  - Stoma site pain [Recovered/Resolved]
  - Pain in extremity [Recovered/Resolved]
  - Pain [Recovered/Resolved]
  - Pain [Recovered/Resolved]
  - Stoma site odour [Recovering/Resolving]
  - Asthenia [Not Recovered/Not Resolved]
  - Dizziness [Recovering/Resolving]
  - Abdominal pain [Recovering/Resolving]
  - Depressed mood [Not Recovered/Not Resolved]
  - Vomiting [Recovered/Resolved]
  - Headache [Recovered/Resolved]
  - Nausea [Not Recovered/Not Resolved]
  - Pain in extremity [Not Recovered/Not Resolved]
  - Ocular discomfort [Recovered/Resolved]
  - Tension [Not Recovered/Not Resolved]
  - Rhinalgia [Recovering/Resolving]
  - Chest discomfort [Recovered/Resolved]
  - Stoma site pain [Recovered/Resolved]
  - Abnormal dreams [Not Recovered/Not Resolved]
  - On and off phenomenon [Not Recovered/Not Resolved]
  - Muscle spasms [Not Recovered/Not Resolved]
  - Parkinson^s disease [Not Recovered/Not Resolved]
  - Impaired driving ability [Not Recovered/Not Resolved]
  - Fatigue [Not Recovered/Not Resolved]
  - General physical health deterioration [Not Recovered/Not Resolved]
  - Hyperhidrosis [Recovered/Resolved]
  - Bradykinesia [Recovered/Resolved]
  - Adverse food reaction [Not Recovered/Not Resolved]
  - Pain in extremity [Recovering/Resolving]
  - Musculoskeletal stiffness [Recovered/Resolved]
  - Drug level decreased [Not Recovered/Not Resolved]
  - Posture abnormal [Recovered/Resolved]
  - Weight decreased [Not Recovered/Not Resolved]
  - Pyrexia [Recovered/Resolved]
  - Nocturia [Not Recovered/Not Resolved]
  - Device leakage [Unknown]
  - Hypogeusia [Not Recovered/Not Resolved]
  - Decreased appetite [Not Recovered/Not Resolved]
  - Tremor [Recovered/Resolved]
  - Tremor [Recovered/Resolved]
  - Hallucination [Not Recovered/Not Resolved]
  - Chills [Not Recovered/Not Resolved]
  - Musculoskeletal discomfort [Not Recovered/Not Resolved]
  - Diarrhoea [Not Recovered/Not Resolved]
  - Anxiety [Not Recovered/Not Resolved]
  - Arthralgia [Recovering/Resolving]
  - Dyspnoea exertional [Unknown]
  - Abdominal pain upper [Recovered/Resolved]
  - Hyperhidrosis [Recovering/Resolving]
  - Eye pain [Recovering/Resolving]
  - Hypophagia [Unknown]
  - Joint range of motion decreased [Not Recovered/Not Resolved]
  - Stoma site erythema [Not Recovered/Not Resolved]
  - Somnolence [Not Recovered/Not Resolved]
  - Insomnia [Recovered/Resolved]
  - Stoma site discharge [Recovered/Resolved]
  - Stoma site pain [Recovering/Resolving]
  - Memory impairment [Not Recovered/Not Resolved]
  - Feeling abnormal [Not Recovered/Not Resolved]
  - Mobility decreased [Recovered/Resolved]
  - Medical device site scab [Not Recovered/Not Resolved]
  - Mobility decreased [Not Recovered/Not Resolved]
  - Malaise [Not Recovered/Not Resolved]
  - Hyposmia [Not Recovered/Not Resolved]
  - Nausea [Recovered/Resolved]

NARRATIVE: CASE EVENT DATE: 2017
